FAERS Safety Report 9142671 (Version 3)
Quarter: 2013Q2

REPORT INFORMATION
  Report Type: Report from Study
  Country: JP (occurrence: JP)
  Receive Date: 20130306
  Receipt Date: 20130419
  Transmission Date: 20140414
  Serious: Yes (Death)
  Sender: FDA-Public Use
  Company Number: JP-JNJFOC-20130300534

PATIENT
  Age: 68 Year
  Sex: Male

DRUGS (22)
  1. ONEDURO [Suspect]
     Indication: CANCER PAIN
     Route: 062
     Dates: start: 20121122, end: 20121124
  2. ONEDURO [Suspect]
     Indication: CANCER PAIN
     Route: 062
     Dates: start: 20121125, end: 20121206
  3. ONEDURO [Suspect]
     Indication: CANCER PAIN
     Route: 062
     Dates: start: 20121119, end: 20121121
  4. DUROTEP MT [Suspect]
     Indication: CANCER PAIN
     Route: 062
     Dates: start: 20121105, end: 20121118
  5. ANPEC [Concomitant]
     Indication: CANCER PAIN
     Route: 054
     Dates: start: 20121126, end: 20121126
  6. ANPEC [Concomitant]
     Indication: CANCER PAIN
     Route: 054
     Dates: start: 20121127, end: 20121127
  7. ANPEC [Concomitant]
     Indication: CANCER PAIN
     Route: 054
     Dates: start: 20121128, end: 20121128
  8. ANPEC [Concomitant]
     Indication: CANCER PAIN
     Route: 054
     Dates: start: 20121129, end: 20121202
  9. ANPEC [Concomitant]
     Indication: CANCER PAIN
     Route: 054
     Dates: start: 20121125, end: 20121125
  10. ANPEC [Concomitant]
     Indication: CANCER PAIN
     Route: 054
     Dates: start: 20121118, end: 20121118
  11. ANPEC [Concomitant]
     Indication: CANCER PAIN
     Dosage: RESCUE DOSE
     Route: 054
     Dates: start: 20121119, end: 20121119
  12. ANPEC [Concomitant]
     Indication: CANCER PAIN
     Route: 054
     Dates: start: 20121120, end: 20121120
  13. ANPEC [Concomitant]
     Indication: CANCER PAIN
     Route: 054
     Dates: start: 20121121, end: 20121121
  14. ANPEC [Concomitant]
     Indication: CANCER PAIN
     Route: 054
     Dates: start: 20121124, end: 20121124
  15. ANPEC [Concomitant]
     Indication: CANCER PAIN
     Route: 054
     Dates: start: 20121122, end: 20121123
  16. ELNEOPA NO 1 [Concomitant]
     Indication: CANCER PAIN
     Route: 042
     Dates: end: 20121206
  17. SODIUM CHLORIDE [Concomitant]
     Indication: CANCER PAIN
     Route: 042
     Dates: end: 20121206
  18. LASIX [Concomitant]
     Indication: CANCER PAIN
     Route: 042
     Dates: end: 20121205
  19. RINDERON [Concomitant]
     Indication: CANCER PAIN
     Route: 042
     Dates: end: 20121205
  20. OMEPRAL [Concomitant]
     Indication: PROPHYLAXIS
     Route: 042
     Dates: end: 20121205
  21. ROPION [Concomitant]
     Indication: CANCER PAIN
     Route: 042
     Dates: end: 20121205
  22. LIDOCAINE [Concomitant]
     Indication: CANCER PAIN
     Route: 042
     Dates: end: 20121205

REACTIONS (2)
  - Oesophageal carcinoma [Fatal]
  - Product quality issue [Unknown]
